FAERS Safety Report 6306779-6 (Version None)
Quarter: 2009Q3

REPORT INFORMATION
  Report Type: 
  Country: None (occurrence: None)
  Receive Date: 20090812
  Receipt Date: 20090807
  Transmission Date: 20100115
  Serious: Yes (Hospitalization)
  Sender: FDA-Public Use
  Company Number: GB-TEVA-205350ISR

PATIENT
  Age: 77 Year
  Sex: Female

DRUGS (4)
  1. MIRTAZAPINE [Suspect]
     Indication: DEPRESSED MOOD
     Route: 048
     Dates: start: 20080509
  2. MIRTAZAPINE [Concomitant]
  3. STRONTIUM RANELATE [Suspect]
     Indication: OSTEOARTHRITIS
     Route: 048
     Dates: start: 20080509
  4. STRONTIUM RANELATE [Suspect]
     Indication: OSTEOPENIA

REACTIONS (4)
  - DYSPNOEA [None]
  - HAEMATOMA [None]
  - INFECTION [None]
  - PLEURAL EFFUSION [None]
